FAERS Safety Report 13820031 (Version 2)
Quarter: 2017Q3

REPORT INFORMATION
  Report Type: Report from Study
  Country: AR (occurrence: AR)
  Receive Date: 20170801
  Receipt Date: 20170818
  Transmission Date: 20171127
  Serious: Yes (Disabling, Other)
  Sender: FDA-Public Use
  Company Number: AR-GLAXOSMITHKLINE-AR2017099856

PATIENT
  Age: 35 Year
  Sex: Male

DRUGS (5)
  1. MEPREDNISONE [Suspect]
     Active Substance: MEPREDNISONE
     Indication: ASTHMA
     Dosage: 20 MG, 1D
     Route: 048
     Dates: start: 20140728, end: 20140731
  2. MEPOLIZUMAB [Suspect]
     Active Substance: MEPOLIZUMAB
     Indication: ASTHMA
     Dosage: 100 MG, CYC
     Route: 058
     Dates: start: 20141128
  3. MEPREDNISONE [Suspect]
     Active Substance: MEPREDNISONE
     Dosage: 10 MG, 1D
     Route: 048
     Dates: start: 20140417, end: 20140626
  4. MEPREDNISONE [Suspect]
     Active Substance: MEPREDNISONE
     Dosage: 20 MG, 1D
     Route: 048
     Dates: start: 20140407, end: 20140416
  5. CRONOLEVEL [Suspect]
     Active Substance: BETAMETHASONE ACETATE\BETAMETHASONE SODIUM PHOSPHATE
     Indication: COMPLEX REGIONAL PAIN SYNDROME
     Route: 030
     Dates: start: 20160118, end: 20160118

REACTIONS (1)
  - Osteonecrosis [Not Recovered/Not Resolved]

NARRATIVE: CASE EVENT DATE: 20170615
